FAERS Safety Report 13626917 (Version 1)
Quarter: 2017Q2

REPORT INFORMATION
  Report Type: Spontaneous
  Country: US (occurrence: US)
  Receive Date: 20170608
  Receipt Date: 20170608
  Transmission Date: 20170830
  Serious: No
  Sender: FDA-Public Use
  Company Number: US-GLAXOSMITHKLINE-US2017086767

PATIENT
  Age: 75 Year
  Sex: Male

DRUGS (1)
  1. NICORETTE [Suspect]
     Active Substance: NICOTINE
     Indication: PRODUCT USED FOR UNKNOWN INDICATION
     Dosage: 4 MG, UNK

REACTIONS (5)
  - Malaise [Unknown]
  - Wrong technique in product usage process [Unknown]
  - Burning sensation [Unknown]
  - Dyspepsia [Unknown]
  - Abdominal pain upper [Unknown]
